FAERS Safety Report 9650775 (Version 1)
Quarter: 2013Q4

REPORT INFORMATION
  Report Type: Spontaneous
  Country: US (occurrence: None)
  Receive Date: 20131025
  Receipt Date: 20131025
  Transmission Date: 20140711
  Serious: No
  Sender: FDA-Public Use
  Company Number: None

PATIENT
  Sex: Female

DRUGS (2)
  1. TEMOZOLOMIDE [Suspect]
     Indication: BRAIN NEOPLASM MALIGNANT
     Dosage: DAILY X5 DAYS
     Route: 048
     Dates: start: 20130903
  2. TEMOZOLOMIDE [Suspect]
     Indication: BRAIN NEOPLASM MALIGNANT
     Dosage: DAILY X5 DAYS
     Route: 048
     Dates: start: 20130903

REACTIONS (2)
  - Rash generalised [None]
  - Product substitution issue [None]
